FAERS Safety Report 7803198-8 (Version None)
Quarter: 2011Q4

REPORT INFORMATION
  Report Type: 
  Country: None (occurrence: None)
  Receive Date: 20111007
  Receipt Date: 20110928
  Transmission Date: 20120403
  Serious: Yes (Other)
  Sender: FDA-Public Use
  Company Number: AU-CELGENEUS-008-C5013-11093341

PATIENT
  Sex: Male
  Weight: 88.9 kg

DRUGS (13)
  1. LENALIDOMIDE [Suspect]
     Indication: MULTIPLE MYELOMA
     Dosage: 25 MILLIGRAM
     Route: 048
     Dates: start: 20100505
  2. NEXIUM [Concomitant]
     Indication: GASTRITIS
     Route: 058
     Dates: start: 20100301
  3. PROCHLORPERAZINE [Concomitant]
     Indication: NAUSEA
  4. ZOMETA [Concomitant]
     Indication: OSTEOPOROSIS PROPHYLAXIS
     Route: 041
     Dates: start: 20100506
  5. NEXIUM [Concomitant]
  6. ACETAMINOPHEN [Concomitant]
     Indication: HEADACHE
     Route: 048
     Dates: start: 20100511
  7. LENALIDOMIDE [Suspect]
     Route: 048
     Dates: end: 20110921
  8. DEXAMETHASONE [Suspect]
     Indication: MULTIPLE MYELOMA
     Dosage: 40 MILLIGRAM
     Route: 065
     Dates: start: 20100505
  9. DEXAMETHASONE [Suspect]
     Route: 065
     Dates: end: 20110921
  10. AMLODIPINE [Concomitant]
     Indication: HYPERTENSION
     Dosage: 5 MILLIGRAM
     Route: 048
     Dates: start: 20100407, end: 20100401
  11. ACETAMINOPHEN [Concomitant]
     Indication: BONE PAIN
  12. PROCHLORPERAZINE [Concomitant]
     Indication: DIZZINESS
     Route: 048
     Dates: start: 20100423, end: 20110101
  13. ENOXAPARIN SODIUM [Concomitant]
     Indication: THROMBOSIS PROPHYLAXIS
     Dosage: 40 MILLIGRAM
     Route: 058
     Dates: start: 20100420

REACTIONS (1)
  - PROSTATE CANCER [None]
